FAERS Safety Report 13381036 (Version 1)
Quarter: 2017Q1

REPORT INFORMATION
  Report Type: Spontaneous
  Country: US (occurrence: US)
  Receive Date: 20170328
  Receipt Date: 20170328
  Transmission Date: 20170429
  Serious: Yes (Disabling)
  Sender: FDA-Public Use
  Company Number: None

PATIENT
  Age: 73 Year
  Sex: Female
  Weight: 86.18 kg

DRUGS (11)
  1. XANAX [Concomitant]
     Active Substance: ALPRAZOLAM
  2. NITRO FURANTOIN MACRO 100MG CAPSULES [Suspect]
     Active Substance: NITROFURANTOIN
     Route: 048
     Dates: start: 20170124, end: 20170125
  3. LEXAPRO [Concomitant]
     Active Substance: ESCITALOPRAM OXALATE
  4. PROBIOTIC [Concomitant]
     Active Substance: PROBIOTICS NOS
  5. CLONAZEPAM. [Concomitant]
     Active Substance: CLONAZEPAM
  6. AREDS 2 [Concomitant]
     Active Substance: MINERALS\VITAMINS
  7. CALCIUM [Concomitant]
     Active Substance: CALCIUM
  8. FISH OIL [Concomitant]
     Active Substance: FISH OIL
  9. VITAMIN D3 [Concomitant]
     Active Substance: CHOLECALCIFEROL
  10. CIPROFLOXACIN 250MG [Suspect]
     Active Substance: CIPROFLOXACIN
     Indication: URINARY TRACT INFECTION
     Route: 048
     Dates: start: 20170122, end: 20170125
  11. PROPRANOLOL [Concomitant]
     Active Substance: PROPRANOLOL HYDROCHLORIDE

REACTIONS (7)
  - Dizziness [None]
  - Mobility decreased [None]
  - Diarrhoea [None]
  - Fatigue [None]
  - Tinnitus [None]
  - Dysstasia [None]
  - Headache [None]

NARRATIVE: CASE EVENT DATE: 20170124
